FAERS Safety Report 7764073-0 (Version None)
Quarter: 2011Q3

REPORT INFORMATION
  Report Type: 
  Country: None (occurrence: None)
  Receive Date: 20110921
  Receipt Date: 20110913
  Transmission Date: 20111222
  Serious: Yes (Hospitalization)
  Sender: FDA-Public Use
  Company Number: IT-JNJFOC-20110905867

PATIENT
  Age: 89 Year
  Sex: Female

DRUGS (8)
  1. LASIX [Suspect]
     Indication: CARDIAC FAILURE
     Route: 048
     Dates: start: 20110706, end: 20110806
  2. RAMIPRIL [Suspect]
     Indication: HYPERTENSION
     Route: 048
     Dates: start: 20110706, end: 20110806
  3. LASIX [Suspect]
     Route: 048
     Dates: start: 20110706, end: 20110806
  4. ALLOPURINOL [Suspect]
     Indication: GOUT
     Route: 048
     Dates: start: 20110706, end: 20110806
  5. BISOPROLOL FUMARATE [Suspect]
     Indication: CARDIAC FAILURE CHRONIC
     Route: 048
     Dates: start: 20110706, end: 20110806
  6. ENOXAPARIN SODIUM [Suspect]
     Indication: THROMBOSIS PROPHYLAXIS
     Route: 042
     Dates: start: 20110706, end: 20110806
  7. LEVOFLOXACIN [Suspect]
     Indication: RESPIRATORY TRACT INFECTION
     Route: 048
     Dates: start: 20110706, end: 20110806
  8. LUVION [Suspect]
     Indication: HYPERALDOSTERONISM
     Route: 048
     Dates: start: 20110706, end: 20110806

REACTIONS (2)
  - DRUG HYPERSENSITIVITY [None]
  - PRURIGO [None]
